FAERS Safety Report 7537617-1 (Version None)
Quarter: 2011Q2

REPORT INFORMATION
  Report Type: 
  Country: None (occurrence: None)
  Receive Date: 20110609
  Receipt Date: 20070710
  Transmission Date: 20111010
  Serious: Yes (Hospitalization)
  Sender: FDA-Public Use
  Company Number: PHNU2007DE02452

PATIENT
  Sex: Male
  Weight: 84 kg

DRUGS (2)
  1. AMLODIPINE [Concomitant]
     Indication: HYPERTENSION
     Dosage: 10 MG, QD
     Route: 048
     Dates: start: 20061215
  2. DIOVAN [Suspect]
     Indication: HYPERTENSION
     Dates: start: 20061215

REACTIONS (1)
  - ANKLE FRACTURE [None]
